FAERS Safety Report 10391889 (Version 3)
Quarter: 2014Q3

REPORT INFORMATION
  Report Type: Spontaneous
  Country: US (occurrence: US)
  Receive Date: 20140819
  Receipt Date: 20140917
  Transmission Date: 20150326
  Serious: Yes (Other)
  Sender: FDA-Public Use
  Company Number: CHPA2014US010639

PATIENT
  Age: 80 Year
  Sex: Male

DRUGS (1)
  1. MINERAL ICE PAIN RELIEVING [Suspect]
     Active Substance: MENTHOL
     Indication: MYALGIA
     Dosage: UNK UNK, TID
     Route: 061

REACTIONS (4)
  - Skin cancer [Unknown]
  - Tonsil cancer [Unknown]
  - Musculoskeletal stiffness [Not Recovered/Not Resolved]
  - Pain in extremity [Unknown]
